FAERS Safety Report 8445185-5 (Version None)
Quarter: 2012Q2

REPORT INFORMATION
  Report Type: 
  Country: None (occurrence: None)
  Receive Date: 20120612
  Receipt Date: 20120612
  Transmission Date: 20120825
  Serious: Yes (Other)
  Sender: FDA-Public Use
  Company Number: None

PATIENT
  Age: 33 Year
  Sex: Female

DRUGS (6)
  1. FOLIC ACID [Concomitant]
  2. VITAMIN B COMPLEX CAP [Concomitant]
  3. DEXILANT [Concomitant]
  4. CYMBALTA [Suspect]
     Indication: DEPRESSION
     Dosage: 40MG ONCE A DAY PO
     Route: 048
     Dates: start: 20120401, end: 20120611
  5. MULTI-VITAMIN [Concomitant]
  6. ABILIFY [Concomitant]

REACTIONS (2)
  - CHEILITIS [None]
  - STOMATITIS [None]
